FAERS Safety Report 6418944-8 (Version None)
Quarter: 2009Q4

REPORT INFORMATION
  Report Type: 
  Country: None (occurrence: None)
  Receive Date: 20091029
  Receipt Date: 20091020
  Transmission Date: 20100525
  Serious: No
  Sender: FDA-Public Use
  Company Number: US-B.I. PHARMACEUTICALS,INC./RIDGEFIELD-2009-BP-11517BP

PATIENT
  Age: 67 Year
  Sex: Male

DRUGS (14)
  1. CATAPRES-TTS-1 [Suspect]
     Indication: HYPERTENSION
     Dosage: 0.1 MG
     Route: 061
     Dates: start: 20090401, end: 20090925
  2. CATAPRES-TTS-1 [Suspect]
     Indication: BLOOD PRESSURE
  3. VALPROIC ACID [Concomitant]
  4. ASPIRIN [Concomitant]
  5. LOPRESSOR [Concomitant]
  6. PERIDEX MOUTH RINSE [Concomitant]
  7. POTASSIUM CHLORIDE [Concomitant]
  8. SINGULAIR [Concomitant]
  9. ZANTAC [Concomitant]
  10. SIMVASTATIN [Concomitant]
  11. MAGNESIUM OXIDE [Concomitant]
  12. VITAMIN E [Concomitant]
  13. PENTOXIFYLLINE [Concomitant]
  14. C-TRANEXAMIC ACID [Concomitant]

REACTIONS (4)
  - APPLICATION SITE BURN [None]
  - APPLICATION SITE ERYTHEMA [None]
  - APPLICATION SITE PRURITUS [None]
  - APPLICATION SITE RASH [None]
